FAERS Safety Report 19625065 (Version 1)
Quarter: 2021Q3

REPORT INFORMATION
  Report Type: Spontaneous
  Country: FR (occurrence: FR)
  Receive Date: 20210728
  Receipt Date: 20210728
  Transmission Date: 20211014
  Serious: Yes (Hospitalization, Other)
  Sender: FDA-Public Use
  Company Number: FR-VIIV HEALTHCARE LIMITED-FR2021160888

PATIENT
  Age: 51 Year
  Sex: Male
  Weight: 75 kg

DRUGS (2)
  1. TRIUMEQ [Suspect]
     Active Substance: ABACAVIR SULFATE\DOLUTEGRAVIR SODIUM\LAMIVUDINE
     Indication: HIV INFECTION
     Dosage: 1 DF, QD (50/600/300 MG * 1 / DAY)
     Route: 048
     Dates: start: 202101
  2. JULUCA [Interacting]
     Active Substance: DOLUTEGRAVIR SODIUM\RILPIVIRINE HYDROCHLORIDE
     Indication: HIV INFECTION
     Dosage: 1 DF, QD (50/25 MG * 1 / DAY)
     Route: 048
     Dates: start: 202101

REACTIONS (2)
  - Rhabdomyolysis [Recovering/Resolving]
  - Drug interaction [Unknown]

NARRATIVE: CASE EVENT DATE: 20210622
